FAERS Safety Report 12978186 (Version 1)
Quarter: 2016Q4

REPORT INFORMATION
  Report Type: Spontaneous
  Country: US (occurrence: US)
  Receive Date: 20161126
  Receipt Date: 20161126
  Transmission Date: 20170207
  Serious: Yes (Other)
  Sender: FDA-Public Use
  Company Number: None

PATIENT
  Age: 34 Year
  Sex: Female
  Weight: 103.5 kg

DRUGS (1)
  1. LEXAPRO [Suspect]
     Active Substance: ESCITALOPRAM OXALATE
     Indication: ANXIETY
     Dosage: ?          QUANTITY:1 TABLET(S);?
     Route: 048
     Dates: start: 20161014, end: 20161020

REACTIONS (7)
  - Serotonin syndrome [None]
  - Gastrointestinal disorder [None]
  - Mydriasis [None]
  - Palpitations [None]
  - Muscle rigidity [None]
  - Confusional state [None]
  - Product substitution issue [None]

NARRATIVE: CASE EVENT DATE: 20161014
